FAERS Safety Report 5902352-X (Version None)
Quarter: 2008Q3

REPORT INFORMATION
  Report Type: 
  Country: None (occurrence: None)
  Receive Date: 20080925
  Receipt Date: 20080919
  Transmission Date: 20090109
  Serious: Yes (Other)
  Sender: FDA-Public Use
  Company Number: 2008SP019399

PATIENT
  Age: 62 Year
  Sex: Female

DRUGS (4)
  1. PEG-INTRON [Suspect]
     Indication: HEPATITIS C
     Dosage: SC
     Route: 058
     Dates: start: 20080419
  2. RIBAVIRIN [Suspect]
     Indication: HEPATITIS C
     Dosage: PO
     Route: 048
     Dates: start: 20080419
  3. THEOPHYLLINE [Concomitant]
  4. ZOLPIDEM [Concomitant]

REACTIONS (9)
  - ALOPECIA [None]
  - ANXIETY [None]
  - GLAUCOMA [None]
  - INFLUENZA LIKE ILLNESS [None]
  - IRRITABILITY [None]
  - PARAESTHESIA [None]
  - RASH [None]
  - TEARFULNESS [None]
  - VISUAL IMPAIRMENT [None]
